FAERS Safety Report 8901108 (Version 2)
Quarter: 2012Q4

REPORT INFORMATION
  Report Type: 
  Country: US (occurrence: US)
  Receive Date: 20121109
  Receipt Date: 20121217
  Transmission Date: 20130627
  Serious: Yes (Hospitalization, Other)
  Sender: FDA-Public Use
  Company Number: US-ROCHE-1153705

PATIENT
  Age: 61 Year
  Sex: Male

DRUGS (8)
  1. PEGASYS [Suspect]
     Indication: HEPATITIS C
     Route: 058
     Dates: start: 20120803, end: 20121107
  2. INCIVEK [Suspect]
     Indication: HEPATITIS C
     Route: 048
     Dates: start: 20120803, end: 20121026
  3. RIBAVIRIN [Suspect]
     Indication: HEPATITIS C
     Route: 048
     Dates: start: 20120803, end: 20121107
  4. LISINOPRIL [Concomitant]
     Indication: HYPERTENSION
     Route: 048
  5. DITROPAN [Concomitant]
     Indication: URINARY RETENTION
     Route: 048
  6. ASA [Concomitant]
     Indication: CEREBROVASCULAR ACCIDENT
     Route: 048
  7. ZOLOFT [Concomitant]
     Indication: DEPRESSION
     Route: 048
  8. NORCO [Concomitant]
     Indication: PAIN
     Route: 048

REACTIONS (5)
  - Blindness [Unknown]
  - Retinal artery occlusion [Unknown]
  - Cataract nuclear [Unknown]
  - Fatigue [Unknown]
  - Anaemia [Unknown]
